FAERS Safety Report 18035191 (Version 1)
Quarter: 2020Q3

REPORT INFORMATION
  Report Type: Spontaneous
  Country: US (occurrence: US)
  Receive Date: 20200716
  Receipt Date: 20200716
  Transmission Date: 20201103
  Serious: Yes (Other)
  Sender: FDA-Public Use
  Company Number: None

PATIENT
  Age: 25 Year
  Sex: Male
  Weight: 56.25 kg

DRUGS (1)
  1. BLUMEN CLEAR ADVANCED HAND SANITIZER [Suspect]
     Active Substance: ALCOHOL
     Indication: INFECTION PROPHYLAXIS
     Dosage: ?          QUANTITY:1 PUMP;?
     Route: 061
     Dates: start: 20200401, end: 20200716

REACTIONS (5)
  - Nausea [None]
  - Headache [None]
  - Migraine [None]
  - Decreased appetite [None]
  - Abdominal pain upper [None]

NARRATIVE: CASE EVENT DATE: 20200712
